FAERS Safety Report 15864245 (Version 1)
Quarter: 2019Q1

REPORT INFORMATION
  Report Type: Spontaneous
  Country: US (occurrence: US)
  Receive Date: 20190124
  Receipt Date: 20190124
  Transmission Date: 20190417
  Serious: No
  Sender: FDA-Public Use
  Company Number: US-DERMIRA, INC.-US-2018DER000031

PATIENT

DRUGS (1)
  1. QBREXZA [Suspect]
     Active Substance: GLYCOPYRRONIUM TOSYLATE
     Indication: HYPERHIDROSIS
     Dosage: UNK , UNK
     Route: 061
     Dates: start: 20181017, end: 20181017

REACTIONS (4)
  - Vision blurred [Not Recovered/Not Resolved]
  - Wrong technique in product usage process [Recovered/Resolved]
  - Prescription drug used without a prescription [Unknown]
  - Mydriasis [Not Recovered/Not Resolved]

NARRATIVE: CASE EVENT DATE: 20181017
